FAERS Safety Report 10489777 (Version 2)
Quarter: 2015Q3

REPORT INFORMATION
  Report Type: Spontaneous
  Country: DK (occurrence: DK)
  Receive Date: 20141002
  Receipt Date: 20150908
  Transmission Date: 20151125
  Serious: Yes (Hospitalization)
  Sender: FDA-Public Use
  Company Number: DK-TEVA-512186ISR

PATIENT
  Age: 79 Year
  Sex: Female
  Weight: 45 kg

DRUGS (13)
  1. BONVIVA [Concomitant]
     Active Substance: IBANDRONATE SODIUM
  2. SERTRALINHYDROCHLORID [Concomitant]
  3. HJERDYL [Suspect]
     Active Substance: ASPIRIN
     Indication: ARTERIOSCLEROSIS
     Dosage: STRENGTH: 75 MG
     Route: 048
     Dates: start: 2007, end: 20140903
  4. BUDENOFALK [Concomitant]
     Active Substance: BUDESONIDE
  5. PREDNISOLON [Concomitant]
     Active Substance: PREDNISOLONE
     Indication: ILL-DEFINED DISORDER
     Dosage: DOSAGE: 1 TABLET DAILY, STRENGTH: 37.5 MG
     Route: 048
     Dates: start: 20140830, end: 20140905
  6. PINEX [Concomitant]
     Active Substance: ACETAMINOPHEN
  7. TRADOLAN [Concomitant]
     Active Substance: TRAMADOL
  8. SPIRIVA RESPIMAT [Concomitant]
     Active Substance: TIOTROPIUM BROMIDE
  9. SYMBICORT FORTE TURBOHALER [Concomitant]
  10. ASASANTIN RETARD [Suspect]
     Active Substance: ASPIRIN\DIPYRIDAMOLE
     Indication: CEREBROVASCULAR ACCIDENT
     Dosage: STRENGTH: 200 + 25 MG. PROLONGED-RELEASE CAPSULE, HARD
     Route: 048
     Dates: start: 2006, end: 20140905
  11. BRICANYL [Concomitant]
     Active Substance: TERBUTALINE SULFATE
  12. IBUPROFEN. [Suspect]
     Active Substance: IBUPROFEN
     Indication: PAIN
     Dosage: STRENGTH: 400 MG
     Route: 048
     Dates: start: 2012, end: 20140830
  13. BRENTAN [Concomitant]
     Active Substance: HYDROCORTISONE\MICONAZOLE

REACTIONS (5)
  - Pallor [Recovered/Resolved]
  - Vomiting [Recovered/Resolved]
  - Faeces discoloured [Recovered/Resolved]
  - Gastric ulcer haemorrhage [Recovered/Resolved]
  - Diarrhoea [Recovered/Resolved]

NARRATIVE: CASE EVENT DATE: 20140831
